FAERS Safety Report 9242543 (Version 3)
Quarter: 2013Q4

REPORT INFORMATION
  Report Type: Spontaneous
  Country: US (occurrence: US)
  Receive Date: 20130419
  Receipt Date: 20131212
  Transmission Date: 20140711
  Serious: No
  Sender: FDA-Public Use
  Company Number: US-PFIZER INC-2013121695

PATIENT
  Age: 89 Year
  Sex: Female
  Weight: 62.59 kg

DRUGS (6)
  1. ADVIL PM [Suspect]
     Indication: SLEEP DISORDER
     Dosage: TWO CAPSULES, DAILY
     Route: 048
     Dates: start: 201304
  2. ADVIL PM [Suspect]
     Dosage: 200/33 MG, ONCE A DAY
     Route: 048
     Dates: start: 201310, end: 201310
  3. ADVIL [Concomitant]
     Dosage: UNK, THREE TIMES A DAY
  4. CRESTOR [Concomitant]
     Dosage: UNK
  5. ASPIRIN [Concomitant]
     Dosage: 120 MG, ONCE A DAY
  6. ZETIA [Concomitant]
     Dosage: UNK

REACTIONS (1)
  - Drug ineffective [Unknown]
